FAERS Safety Report 5788666-5 (Version None)
Quarter: 2008Q2

REPORT INFORMATION
  Report Type: 
  Country: None (occurrence: None)
  Receive Date: 20080626
  Receipt Date: 20080618
  Transmission Date: 20081010
  Serious: Yes (Other)
  Sender: FDA-Public Use
  Company Number: PHFR2008GB01391

PATIENT
  Sex: Male

DRUGS (2)
  1. CLOZARIL [Suspect]
     Indication: SCHIZOPHRENIA
     Dosage: 200MG DAILY
     Route: 048
     Dates: start: 20071115, end: 20080430
  2. SIMVASTATIN [Concomitant]
     Indication: HYPERCHOLESTEROLAEMIA
     Dosage: 20 MG
     Route: 048

REACTIONS (7)
  - ARRHYTHMIA [None]
  - ATRIOVENTRICULAR BLOCK SECOND DEGREE [None]
  - CARDIOMYOPATHY [None]
  - CONDUCTION DISORDER [None]
  - HYPERTENSION [None]
  - LEFT VENTRICULAR HYPERTROPHY [None]
  - TACHYCARDIA [None]
